FAERS Safety Report 20925065 (Version 1)
Quarter: 2022Q2

REPORT INFORMATION
  Report Type: Spontaneous
  Country: GR (occurrence: GR)
  Receive Date: 20220607
  Receipt Date: 20220607
  Transmission Date: 20220721
  Serious: Yes (Life-Threatening)
  Sender: FDA-Public Use
  Company Number: None

PATIENT
  Age: 87 Year
  Sex: Female
  Weight: 75 kg

DRUGS (1)
  1. LORLATINIB [Suspect]
     Active Substance: LORLATINIB
     Indication: Neoplasm malignant
     Dosage: 100 ONCE PER DAY
     Dates: start: 20220311, end: 20220527

REACTIONS (1)
  - Psychotic disorder due to a general medical condition [Recovering/Resolving]

NARRATIVE: CASE EVENT DATE: 20220525
